FAERS Safety Report 5393406-8 (Version None)
Quarter: 2007Q3

REPORT INFORMATION
  Report Type: 
  Country: None (occurrence: None)
  Receive Date: 20070720
  Receipt Date: 20070720
  Transmission Date: 20080115
  Serious: Yes (Other)
  Sender: FDA-Public Use
  Company Number: None

PATIENT
  Age: 45 Year
  Sex: Female

DRUGS (5)
  1. PALIPERIDONE 6MG [Suspect]
     Indication: SCHIZOPHRENIA
     Dosage: 6 MG PO QHS
     Route: 048
     Dates: start: 20070322, end: 20070325
  2. PALIPERIDONE 6MG [Suspect]
     Indication: SCHIZOPHRENIA
     Dosage: 6 MG PO QHS
     Route: 048
     Dates: start: 20070402, end: 20070403
  3. M.V.I. [Concomitant]
  4. LORAZEPAM [Concomitant]
  5. BLISTEX [Concomitant]

REACTIONS (2)
  - DROOLING [None]
  - DYSPHAGIA [None]
